FAERS Safety Report 8937151 (Version 1)
Quarter: 2012Q4

REPORT INFORMATION
  Report Type: Spontaneous
  Country: UA (occurrence: None)
  Receive Date: 20121123
  Receipt Date: 20121123
  Transmission Date: 20130627
  Serious: Yes (Other)
  Sender: FDA-Public Use
  Company Number: 7175005

PATIENT
  Age: 40 Year
  Sex: Female

DRUGS (8)
  1. EUTHYROX [Suspect]
     Indication: THYROIDECTOMY TOTAL
     Route: 048
     Dates: start: 201210
  2. EUTHYROX [Suspect]
     Indication: THYROIDECTOMY TOTAL
     Route: 048
     Dates: end: 20121107
  3. EUTHYROX [Suspect]
     Indication: THYROIDECTOMY TOTAL
     Route: 048
     Dates: end: 20121107
  4. EUTHYROX [Suspect]
     Indication: THYROIDECTOMY TOTAL
     Route: 048
     Dates: end: 20121107
  5. RIBOXINE (INOSINE) (INOSINE) [Concomitant]
  6. DEXAMETHASONE (DEXAMETHASONE) [Concomitant]
  7. CALCIUM LACTATE GLUCONATE (CALCIFORT) [Concomitant]
  8. GLUCOSE (GLUCOSE) [Concomitant]

REACTIONS (5)
  - Convulsion [None]
  - Hyperhidrosis [None]
  - Tremor [None]
  - Agitation [None]
  - Tachycardia [None]
